FAERS Safety Report 4497880-0 (Version None)
Quarter: 2004Q4

REPORT INFORMATION
  Report Type: 
  Country: None (occurrence: None)
  Receive Date: 20041104
  Receipt Date: 20041025
  Transmission Date: 20050328
  Serious: Yes (Death)
  Sender: FDA-Public Use
  Company Number: 2004241469NO

PATIENT
  Age: 85 Year
  Sex: Male

DRUGS (2)
  1. FRAGMIN [Suspect]
     Indication: DEEP VEIN THROMBOSIS
     Dosage: 6500 IU, BID, SUBCUTANEOUS
     Route: 058
     Dates: start: 20040425, end: 20040426
  2. MAREVAN (WARFARIN SODIUM) TABELT, 2.5 MG [Suspect]
     Indication: DEEP VEIN THROMBOSIS
     Dosage: 2.5 MG , 16 TIME WEEKLY, ORAL
     Route: 048
     Dates: start: 20030601, end: 20040426

REACTIONS (2)
  - FALL [None]
  - SUBDURAL HAEMATOMA [None]
